FAERS Safety Report 7224851-3 (Version None)
Quarter: 2011Q1

REPORT INFORMATION
  Report Type: 
  Country: None (occurrence: None)
  Receive Date: 20110113
  Receipt Date: 20110106
  Transmission Date: 20110831
  Serious: Yes (Hospitalization, Other)
  Sender: FDA-Public Use
  Company Number: US-ROCHE-730954

PATIENT
  Sex: Male
  Weight: 93 kg

DRUGS (1)
  1. ACCUTANE [Suspect]
     Indication: ACNE
     Dosage: START DATE: SPRING 1991
     Route: 065
     Dates: start: 19910101

REACTIONS (7)
  - DEEP VEIN THROMBOSIS [None]
  - POUCHITIS [None]
  - NAUSEA [None]
  - DRUG HYPERSENSITIVITY [None]
  - COLITIS ULCERATIVE [None]
  - EMOTIONAL DISTRESS [None]
  - GASTROINTESTINAL INJURY [None]
